FAERS Safety Report 8808051 (Version 4)
Quarter: 2014Q2

REPORT INFORMATION
  Report Type: Report from Study
  Country: JP (occurrence: JP)
  Receive Date: 20120925
  Receipt Date: 20140529
  Transmission Date: 20141212
  Serious: Yes (Life-Threatening, Hospitalization)
  Sender: FDA-Public Use
  Company Number: JP-BRISTOL-MYERS SQUIBB COMPANY-16960759

PATIENT
  Age: 72 Year
  Sex: Male
  Weight: 52 kg

DRUGS (1)
  1. SPRYCEL [Suspect]
     Indication: CHRONIC MYELOID LEUKAEMIA
     Dosage: 14AP-26MY09 80MG?27MY09-10NV10;23DC09-2FB10 60MG?24FB-9MR10 60MG 5/WK?10MR-16AG10 80MG 5/WK
     Route: 048
     Dates: start: 20090414

REACTIONS (1)
  - Guillain-Barre syndrome [Recovering/Resolving]
